FAERS Safety Report 18486039 (Version 1)
Quarter: 2020Q4

REPORT INFORMATION
  Report Type: Spontaneous
  Country: US (occurrence: US)
  Receive Date: 20201110
  Receipt Date: 20201110
  Transmission Date: 20210114
  Serious: Yes (Hospitalization)
  Sender: FDA-Public Use
  Company Number: None

PATIENT
  Age: 67 Year
  Sex: Female

DRUGS (1)
  1. CARVEDILOL (CARVEDILOL 3.125MG TAB) [Suspect]
     Active Substance: CARVEDILOL
     Route: 048
     Dates: start: 20200915, end: 20200915

REACTIONS (2)
  - Bradycardia [None]
  - Shock [None]

NARRATIVE: CASE EVENT DATE: 20200919
